FAERS Safety Report 8391287-1 (Version None)
Quarter: 2012Q2

REPORT INFORMATION
  Report Type: 
  Country: None (occurrence: None)
  Receive Date: 20120529
  Receipt Date: 20120518
  Transmission Date: 20120825
  Serious: Yes (Other)
  Sender: FDA-Public Use
  Company Number: US-JNJFOC-20110810808

PATIENT
  Sex: Female

DRUGS (3)
  1. LEVAQUIN [Suspect]
     Indication: SINUSITIS
     Route: 048
     Dates: start: 20090801
  2. ADVAIR DISKUS 100/50 [Suspect]
     Indication: ASTHMA
     Route: 065
  3. LEVAQUIN [Suspect]
     Indication: PYREXIA
     Route: 048
     Dates: start: 20090801

REACTIONS (10)
  - TRIGGER FINGER [None]
  - HYPERTENSION [None]
  - TENDON RUPTURE [None]
  - TENOSYNOVITIS STENOSANS [None]
  - GINGIVAL DISORDER [None]
  - ANGER [None]
  - TENDONITIS [None]
  - THROAT IRRITATION [None]
  - ROTATOR CUFF SYNDROME [None]
  - CONFUSIONAL STATE [None]
